FAERS Safety Report 23446305 (Version 3)
Quarter: 2024Q2

REPORT INFORMATION
  Report Type: Spontaneous
  Country: US (occurrence: US)
  Receive Date: 20240126
  Receipt Date: 20240412
  Transmission Date: 20240716
  Serious: Yes (Other)
  Sender: FDA-Public Use
  Company Number: US-ASTELLAS-2024US001989

PATIENT
  Age: 87 Year
  Sex: Female

DRUGS (10)
  1. IZERVAY [Suspect]
     Active Substance: AVACINCAPTAD PEGOL SODIUM
     Indication: Dry age-related macular degeneration
     Dosage: UNK UNK, MONTHLY (OD, RIGHT EYE)
     Route: 031
     Dates: start: 20231017, end: 20231017
  2. IZERVAY [Suspect]
     Active Substance: AVACINCAPTAD PEGOL SODIUM
     Indication: Dry age-related macular degeneration
     Dosage: UNK UNK, MONTHLY (OD, RIGHT EYE)
     Route: 031
     Dates: start: 20231017, end: 20231017
  3. IZERVAY [Suspect]
     Active Substance: AVACINCAPTAD PEGOL SODIUM
     Indication: Dry age-related macular degeneration
     Dosage: UNK UNK, MONTHLY (OD, RIGHT EYE)
     Route: 031
     Dates: start: 20231017, end: 20231017
  4. IZERVAY [Suspect]
     Active Substance: AVACINCAPTAD PEGOL SODIUM
     Indication: Dry age-related macular degeneration
     Dosage: UNK UNK, MONTHLY (OD, RIGHT EYE)
     Route: 031
     Dates: start: 20231017, end: 20231017
  5. IZERVAY [Suspect]
     Active Substance: AVACINCAPTAD PEGOL SODIUM
     Indication: Dry age-related macular degeneration
     Dosage: UNK UNK, MONTHLY (OD, RIGHT EYE)
     Route: 031
     Dates: start: 20231017, end: 20231017
  6. IZERVAY [Suspect]
     Active Substance: AVACINCAPTAD PEGOL SODIUM
     Dosage: UNK UNK, MONTHLY (OD, RIGHT EYE)
     Route: 031
     Dates: start: 20231130, end: 20231130
  7. IZERVAY [Suspect]
     Active Substance: AVACINCAPTAD PEGOL SODIUM
     Dosage: UNK UNK, MONTHLY (OD, RIGHT EYE)
     Route: 031
     Dates: start: 20231130, end: 20231130
  8. IZERVAY [Suspect]
     Active Substance: AVACINCAPTAD PEGOL SODIUM
     Dosage: UNK UNK, MONTHLY (OD, RIGHT EYE)
     Route: 031
     Dates: start: 20231130, end: 20231130
  9. IZERVAY [Suspect]
     Active Substance: AVACINCAPTAD PEGOL SODIUM
     Dosage: UNK UNK, MONTHLY (OD, RIGHT EYE)
     Route: 031
     Dates: start: 20231130, end: 20231130
  10. IZERVAY [Suspect]
     Active Substance: AVACINCAPTAD PEGOL SODIUM
     Dosage: UNK UNK, MONTHLY (OD, RIGHT EYE)
     Route: 031
     Dates: start: 20231130, end: 20231130

REACTIONS (5)
  - Dry age-related macular degeneration [Unknown]
  - Disease progression [Unknown]
  - Optic ischaemic neuropathy [Recovered/Resolved]
  - Visual impairment [Not Recovered/Not Resolved]
  - Eye inflammation [Unknown]

NARRATIVE: CASE EVENT DATE: 20231201
